FAERS Safety Report 13777886 (Version 2)
Quarter: 2018Q3

REPORT INFORMATION
  Report Type: Report from Study
  Country: FR (occurrence: FR)
  Receive Date: 20170721
  Receipt Date: 20180816
  Transmission Date: 20181010
  Serious: Yes (Hospitalization, Other)
  Sender: FDA-Public Use
  Company Number: FR-BRISTOL-MYERS SQUIBB COMPANY-BMS-2017-063412

PATIENT
  Age: 62 Year
  Sex: Male
  Weight: 71 kg

DRUGS (13)
  1. IPILIMUMAB [Suspect]
     Active Substance: IPILIMUMAB
     Indication: SQUAMOUS CELL CARCINOMA OF HEAD AND NECK
     Dosage: 70 MG, Q6WK
     Route: 042
     Dates: start: 20170202
  2. VITAMINE B1 [Concomitant]
     Active Substance: THIAMINE HYDROCHLORIDE
     Indication: PRODUCT USED FOR UNKNOWN INDICATION
     Dosage: 3 TAB, UNK
     Route: 065
     Dates: start: 20170216
  3. LANSOYL [Concomitant]
     Active Substance: MINERAL OIL
     Indication: PRODUCT USED FOR UNKNOWN INDICATION
     Dosage: UNK
     Route: 065
     Dates: start: 20170609
  4. TRANSIPEG                          /00754501/ [Concomitant]
     Active Substance: POLYETHYLENE GLYCOL 3350
     Indication: PRODUCT USED FOR UNKNOWN INDICATION
     Dosage: UNK
     Route: 065
     Dates: start: 20170610
  5. FUNGIZONE [Concomitant]
     Active Substance: AMPHOTERICIN B
     Indication: PRODUCT USED FOR UNKNOWN INDICATION
     Dosage: 1 DF, UNK
     Route: 065
     Dates: start: 20170316
  6. LACTULOSE. [Concomitant]
     Active Substance: LACTULOSE
     Indication: PRODUCT USED FOR UNKNOWN INDICATION
     Dosage: UNK
     Route: 065
     Dates: start: 20170202
  7. PARACETAMOL [Concomitant]
     Active Substance: ACETAMINOPHEN
     Indication: PRODUCT USED FOR UNKNOWN INDICATION
     Dosage: UNK, PRN
     Route: 065
  8. DEXERYL                            /00557601/ [Concomitant]
     Active Substance: CHLORPHENIRAMINE MALEATE\DEXTROMETHORPHAN HYDROBROMIDE\GUAIFENESIN\PHENYLEPHRINE HYDROCHLORIDE
     Indication: PRODUCT USED FOR UNKNOWN INDICATION
     Dosage: 1 DF, UNK
     Route: 065
     Dates: start: 20170216
  9. SPASFON                            /00765801/ [Concomitant]
     Active Substance: PHLOROGLUCINOL\1,3,5-TRIMETHOXYBENZENE
     Indication: PRODUCT USED FOR UNKNOWN INDICATION
     Dosage: UNK
     Route: 065
     Dates: start: 20170509
  10. NIVOLUMAB [Suspect]
     Active Substance: NIVOLUMAB
     Indication: SQUAMOUS CELL CARCINOMA OF HEAD AND NECK
     Dosage: 210 MG, Q2WK
     Route: 042
     Dates: start: 20170202
  11. MUCOMYST [Concomitant]
     Active Substance: ACETYLCYSTEINE
     Indication: PREMEDICATION
     Dosage: 1 DF, UNK
     Route: 065
     Dates: start: 20170202
  12. OXYNORM [Concomitant]
     Active Substance: OXYCODONE HYDROCHLORIDE
     Indication: PRODUCT USED FOR UNKNOWN INDICATION
     Dosage: 5 MG, UNK
     Route: 065
     Dates: start: 20170202
  13. VITAMIN B6 [Concomitant]
     Active Substance: PYRIDOXINE HYDROCHLORIDE
     Indication: PRODUCT USED FOR UNKNOWN INDICATION
     Dosage: 3 TAB, UNK
     Route: 065
     Dates: start: 20170216

REACTIONS (1)
  - Tracheal haemorrhage [Recovered/Resolved]

NARRATIVE: CASE EVENT DATE: 20170707
